FAERS Safety Report 7477603-3 (Version None)
Quarter: 2011Q2

REPORT INFORMATION
  Report Type: 
  Country: None (occurrence: None)
  Receive Date: 20110505
  Receipt Date: 20110425
  Transmission Date: 20111010
  Serious: Yes (Other)
  Sender: FDA-Public Use
  Company Number: TRP_07700_2011

PATIENT
  Sex: Female

DRUGS (2)
  1. RIBASPHERE [Suspect]
     Indication: HEPATITIS
     Dates: start: 20110324
  2. PEG-INTRON [Suspect]
     Indication: HEPATITIS
     Dates: start: 20110324

REACTIONS (5)
  - HALLUCINATION [None]
  - DECREASED APPETITE [None]
  - DISTURBANCE IN ATTENTION [None]
  - FEELING COLD [None]
  - BALANCE DISORDER [None]
